FAERS Safety Report 25733579 (Version 1)
Quarter: 2025Q3

REPORT INFORMATION
  Report Type: Spontaneous
  Country: CN (occurrence: CN)
  Receive Date: 20250828
  Receipt Date: 20250828
  Transmission Date: 20251021
  Serious: Yes (Hospitalization)
  Sender: ROCHE
  Company Number: CN-CHEPLA-2025010196

PATIENT
  Age: 45 Year
  Sex: Female
  Weight: 52.5 kg

DRUGS (5)
  1. BEVACIZUMAB [Suspect]
     Active Substance: BEVACIZUMAB
     Indication: Rectal cancer
     Dosage: APPROVAL NO. REPORTED AS UNKNOWN/BATCH NO. REPORTED AS UNKNOWN
     Route: 042
     Dates: start: 20250711, end: 20250711
  2. CAPECITABINE [Suspect]
     Active Substance: CAPECITABINE
     Indication: Rectal cancer
     Route: 048
     Dates: start: 20250712, end: 20250725
  3. ELOXATIN [Suspect]
     Active Substance: OXALIPLATIN
     Indication: Rectal cancer
     Dosage: APPROVAL NO. REPORTED AS UNKNOWN/BATCH NO. REPORTED AS UNKNOWN
     Route: 042
     Dates: start: 20250712, end: 20250712
  4. SODIUM CHLORIDE [Concomitant]
     Active Substance: SODIUM CHLORIDE
     Dosage: APPROVAL NO. GYZZ H51021157; IVGTT D1
     Route: 042
     Dates: start: 20250711, end: 20250711
  5. DEXTROSE [Concomitant]
     Active Substance: DEXTROSE MONOHYDRATE
     Dosage: APPROVAL NO. GYZZ H51020634; IVGTT D2
     Route: 042
     Dates: start: 20250712, end: 20250712

REACTIONS (1)
  - Myelosuppression [Recovering/Resolving]

NARRATIVE: CASE EVENT DATE: 20250811
